FAERS Safety Report 17622169 (Version 2)
Quarter: 2020Q3

REPORT INFORMATION
  Report Type: Report from Study
  Country: JP (occurrence: JP)
  Receive Date: 20200403
  Receipt Date: 20200706
  Transmission Date: 20201102
  Serious: Yes (Other)
  Sender: FDA-Public Use
  Company Number: JP-UCBSA-2020013638

PATIENT
  Age: 76 Year
  Sex: Male
  Weight: 47 kg

DRUGS (2)
  1. LACOSAMIDE. [Suspect]
     Active Substance: LACOSAMIDE
     Indication: PARTIAL SEIZURES WITH SECONDARY GENERALISATION
     Dosage: 200MG DAILY
     Route: 048
     Dates: end: 20191202
  2. E KEPPRA [Concomitant]
     Active Substance: LEVETIRACETAM
     Indication: PRODUCT USED FOR UNKNOWN INDICATION
     Dosage: 1500MG DAILY
     Route: 048
     Dates: end: 20191202

REACTIONS (2)
  - Altered state of consciousness [Unknown]
  - General physical health deterioration [Unknown]
